FAERS Safety Report 5699667-X (Version None)
Quarter: 2008Q2

REPORT INFORMATION
  Report Type: 
  Country: None (occurrence: None)
  Receive Date: 20080410
  Receipt Date: 20080402
  Transmission Date: 20081010
  Serious: Yes (Hospitalization, Other)
  Sender: FDA-Public Use
  Company Number: PHHY2008JP02610

PATIENT
  Age: 27 Year
  Sex: Female
  Weight: 71 kg

DRUGS (4)
  1. DEPAKENE [Concomitant]
     Indication: PARTIAL SEIZURES
     Dosage: 200 MG
     Route: 048
     Dates: start: 20070101, end: 20080226
  2. DEPAKENE [Concomitant]
     Dosage: 200 MG/ DAY
     Route: 048
     Dates: start: 20080301
  3. NITRAZEPAM [Concomitant]
     Dosage: 2.5 MG/ DAY
     Route: 048
     Dates: start: 20080226, end: 20080228
  4. TEGRETOL [Suspect]
     Indication: PARTIAL SEIZURES
     Dosage: 400 MG/ DAY
     Dates: start: 20080226, end: 20080228

REACTIONS (9)
  - ALTERED STATE OF CONSCIOUSNESS [None]
  - ANTICONVULSANT DRUG LEVEL INCREASED [None]
  - DIZZINESS [None]
  - EYE MOVEMENT DISORDER [None]
  - FEELING DRUNK [None]
  - NAUSEA [None]
  - ORAL INTAKE REDUCED [None]
  - PLATELET COUNT DECREASED [None]
  - SOMNOLENCE [None]
